FAERS Safety Report 11378681 (Version 2)
Quarter: 2015Q3

REPORT INFORMATION
  Report Type: Spontaneous
  Country: US (occurrence: US)
  Receive Date: 20150811
  Receipt Date: 20150916
  Transmission Date: 20151125
  Serious: No
  Sender: FDA-Public Use
  Company Number: US-ELI_LILLY_AND_COMPANY-US200901002182

PATIENT
  Sex: Female

DRUGS (3)
  1. FORTEO [Suspect]
     Active Substance: TERIPARATIDE
     Dosage: UNK, UNK
     Dates: start: 2006
  2. HUMULIN R [Suspect]
     Active Substance: INSULIN HUMAN
  3. HUMULIN N [Suspect]
     Active Substance: INSULIN HUMAN

REACTIONS (2)
  - Blindness [Recovered/Resolved]
  - Blood glucose increased [Recovered/Resolved]
